FAERS Safety Report 16447096 (Version 1)
Quarter: 2019Q2

REPORT INFORMATION
  Report Type: Spontaneous
  Country: US (occurrence: US)
  Receive Date: 20190618
  Receipt Date: 20190618
  Transmission Date: 20190711
  Serious: No
  Sender: FDA-Public Use
  Company Number: US-ELI_LILLY_AND_COMPANY-US201906002246

PATIENT
  Sex: Male

DRUGS (1)
  1. TALTZ [Suspect]
     Active Substance: IXEKIZUMAB
     Indication: PSORIASIS
     Dosage: 80 MG, UNKNOWN
     Route: 058
     Dates: start: 20190520

REACTIONS (6)
  - Arthralgia [Unknown]
  - Asthenia [Unknown]
  - Alcohol poisoning [Unknown]
  - Fatigue [Unknown]
  - Injection site mass [Unknown]
  - Hangover [Unknown]

NARRATIVE: CASE EVENT DATE: 20190531
